FAERS Safety Report 5755098-5 (Version None)
Quarter: 2008Q2

REPORT INFORMATION
  Report Type: 
  Country: None (occurrence: None)
  Receive Date: 20080602
  Receipt Date: 20080207
  Transmission Date: 20081010
  Serious: No
  Sender: FDA-Public Use
  Company Number: A0709436A

PATIENT
  Age: 51 Year
  Sex: Male

DRUGS (8)
  1. AUGMENTIN '125' [Suspect]
     Dosage: 875MG TWICE PER DAY
     Route: 048
     Dates: start: 20080101
  2. AUGMENTIN XR [Suspect]
     Dosage: 2000MG TWICE PER DAY
     Route: 048
     Dates: start: 20080202
  3. ENBREL [Concomitant]
     Dates: end: 20080131
  4. PLAQUENIL [Concomitant]
  5. NSAIDS [Concomitant]
  6. MONOPRIL-HCT [Concomitant]
  7. ALEVE [Concomitant]
  8. MELOXICAM [Concomitant]

REACTIONS (2)
  - DRUG INEFFECTIVE [None]
  - OSTEOMYELITIS [None]
